FAERS Safety Report 24712150 (Version 1)
Quarter: 2024Q4

REPORT INFORMATION
  Report Type: Spontaneous
  Country: US (occurrence: US)
  Receive Date: 20241209
  Receipt Date: 20241209
  Transmission Date: 20250115
  Serious: No
  Sender: NOVARTIS
  Company Number: US-002147023-NVSC2024US233909

PATIENT
  Sex: Female
  Weight: 58 kg

DRUGS (1)
  1. SCEMBLIX [Suspect]
     Active Substance: ASCIMINIB HYDROCHLORIDE
     Indication: White blood cell count increased
     Dosage: 40 MG, BID
     Route: 048

REACTIONS (2)
  - Fatigue [Recovering/Resolving]
  - Off label use [Unknown]
